FAERS Safety Report 8515095-3 (Version None)
Quarter: 2012Q3

REPORT INFORMATION
  Report Type: 
  Country: None (occurrence: None)
  Receive Date: 20120717
  Receipt Date: 20120710
  Transmission Date: 20120928
  Serious: Yes (Life-Threatening)
  Sender: FDA-Public Use
  Company Number: FR-ASTRAZENECA-2012SE47538

PATIENT
  Age: 64 Year
  Sex: Female

DRUGS (11)
  1. SUFENTANIL CITRATE [Suspect]
     Indication: INDUCTION OF ANAESTHESIA
     Dosage: ONCE/SINGLE ADMINISTRATION
     Route: 042
     Dates: start: 20111108, end: 20111108
  2. LORAZEPAM [Concomitant]
  3. APRANAX LP [Concomitant]
  4. OESTRODOSE [Concomitant]
  5. MENAELLE [Concomitant]
  6. DIPRIVAN [Suspect]
     Indication: INDUCTION OF ANAESTHESIA
     Dosage: ONCE/SINGLE ADMINISTRATION
     Route: 042
     Dates: start: 20111108, end: 20111108
  7. LEVOTHYROXINE SODIUM [Concomitant]
  8. STRUCTUM [Concomitant]
  9. CELOCURINE [Suspect]
     Indication: INDUCTION OF ANAESTHESIA
     Dosage: ONCE/SINGLE ADMINISTRATION
     Route: 042
     Dates: start: 20111108, end: 20111108
  10. PANTOPRAZOLE SODIUM [Concomitant]
  11. MORPHINE [Suspect]
     Indication: SPINAL ANAESTHESIA
     Dosage: ONCE/SINGLE ADMINISTRATION
     Dates: start: 20111108, end: 20111108

REACTIONS (1)
  - ANAPHYLACTIC SHOCK [None]
